FAERS Safety Report 5071560-5 (Version None)
Quarter: 2006Q3

REPORT INFORMATION
  Report Type: 
  Country: None (occurrence: None)
  Receive Date: 20060803
  Receipt Date: 20060803
  Transmission Date: 20061208
  Serious: Yes (Hospitalization)
  Sender: FDA-Public Use
  Company Number: None

PATIENT
  Age: 57 Year
  Sex: Male
  Weight: 60.6 kg

DRUGS (1)
  1. HYDROXYUREA [Suspect]
     Indication: LEUKAEMIA
     Dosage: 1000 MG TID WITH FOOD
     Dates: start: 20060425

REACTIONS (7)
  - BLOOD CREATININE INCREASED [None]
  - BLOOD PHOSPHORUS INCREASED [None]
  - BLOOD POTASSIUM INCREASED [None]
  - BLOOD UREA INCREASED [None]
  - METABOLIC ACIDOSIS [None]
  - SEPSIS [None]
  - TUMOUR LYSIS SYNDROME [None]
